FAERS Safety Report 10526601 (Version 1)
Quarter: 2014Q4

REPORT INFORMATION
  Report Type: Spontaneous
  Country: US (occurrence: None)
  Receive Date: 20141016
  Receipt Date: 20141016
  Transmission Date: 20150528
  Serious: Yes (Death, Hospitalization)
  Sender: FDA-Public Use
  Company Number: PIN-2014-00011

PATIENT
  Sex: Male

DRUGS (1)
  1. PHOTOFRIN [Suspect]
     Active Substance: PORFIMER SODIUM

REACTIONS (3)
  - Procedural complication [None]
  - Skin exfoliation [None]
  - Photodynamic therapy [None]
